FAERS Safety Report 14814657 (Version 2)
Quarter: 2018Q2

REPORT INFORMATION
  Report Type: Spontaneous
  Country: US (occurrence: US)
  Receive Date: 20180426
  Receipt Date: 20180608
  Transmission Date: 20180711
  Serious: No
  Sender: FDA-Public Use
  Company Number: US-ASTRAZENECA-2018SE40354

PATIENT
  Sex: Female

DRUGS (1)
  1. TUDORZA PRESSAIR [Suspect]
     Active Substance: ACLIDINIUM BROMIDE
     Route: 055

REACTIONS (6)
  - Spinal column stenosis [Unknown]
  - Aggression [Unknown]
  - Fibromyalgia [Unknown]
  - Circumstance or information capable of leading to device use error [Unknown]
  - Device failure [Unknown]
  - Adverse event [Unknown]
